FAERS Safety Report 21088339 (Version 1)
Quarter: 2022Q3

REPORT INFORMATION
  Report Type: Spontaneous
  Country: US (occurrence: None)
  Receive Date: 20220715
  Receipt Date: 20220715
  Transmission Date: 20221027
  Serious: No
  Sender: FDA-Public Use
  Company Number: None

PATIENT
  Sex: Male

DRUGS (1)
  1. LENALIDOMIDE [Suspect]
     Active Substance: LENALIDOMIDE
     Indication: Plasma cell myeloma
     Dosage: 15MG DAILY BY MOUTH?
     Route: 048
     Dates: start: 202205

REACTIONS (4)
  - Nausea [None]
  - Dizziness [None]
  - Dizziness [None]
  - Diarrhoea [None]
